FAERS Safety Report 15060132 (Version 1)
Quarter: 2018Q2

REPORT INFORMATION
  Report Type: Spontaneous
  Country: US (occurrence: US)
  Receive Date: 20180625
  Receipt Date: 20180625
  Transmission Date: 20180711
  Serious: No
  Sender: FDA-Public Use
  Company Number: US-SUNOVION-2018SUN002372

PATIENT

DRUGS (3)
  1. ANTIDEPRESSANTS [Concomitant]
     Active Substance: UNSPECIFIED INGREDIENT
  2. BENZODIAZEPINE RELATED DRUGS [Concomitant]
     Active Substance: BENZODIAZEPINE
  3. LATUDA [Suspect]
     Active Substance: LURASIDONE HYDROCHLORIDE
     Dosage: UNK
     Route: 048

REACTIONS (1)
  - Withdrawal syndrome [Recovered/Resolved]
